FAERS Safety Report 5155262-2 (Version None)
Quarter: 2006Q4

REPORT INFORMATION
  Report Type: 
  Country: None (occurrence: None)
  Receive Date: 20061121
  Receipt Date: 20061109
  Transmission Date: 20070319
  Serious: Yes (Other)
  Sender: FDA-Public Use
  Company Number: US-MERCK-0611USA03248

PATIENT
  Age: 0 Day
  Sex: Male

DRUGS (1)
  1. SINGULAIR [Suspect]
     Indication: ASTHMA
     Route: 064
     Dates: start: 20040201

REACTIONS (5)
  - ADENOIDAL DISORDER [None]
  - EAR INFECTION [None]
  - IMMUNE SYSTEM DISORDER [None]
  - TONSILLAR DISORDER [None]
  - UPPER RESPIRATORY TRACT INFECTION [None]
